FAERS Safety Report 5835326-8 (Version None)
Quarter: 2008Q3

REPORT INFORMATION
  Report Type: 
  Country: None (occurrence: None)
  Receive Date: 20080804
  Receipt Date: 20080721
  Transmission Date: 20090109
  Serious: Yes (Death)
  Sender: FDA-Public Use
  Company Number: US024146

PATIENT
  Sex: Female

DRUGS (4)
  1. ACTIQ [Suspect]
     Indication: HEADACHE
     Dosage: 800 UG BUCCAL
     Route: 002
     Dates: end: 20060101
  2. ACTIQ [Suspect]
     Indication: PAIN
     Dosage: 800 UG BUCCAL
     Route: 002
     Dates: end: 20060101
  3. OXYCODONE HCL [Concomitant]
  4. MORPHINE [Concomitant]

REACTIONS (2)
  - CARDIOTOXICITY [None]
  - OVERDOSE [None]
